FAERS Safety Report 5040996-0 (Version None)
Quarter: 2006Q3

REPORT INFORMATION
  Report Type: 
  Country: None (occurrence: None)
  Receive Date: 20060703
  Receipt Date: 20050622
  Transmission Date: 20061208
  Serious: No
  Sender: FDA-Public Use
  Company Number: US-GLAXOSMITHKLINE-A0563833A

PATIENT
  Sex: Female

DRUGS (9)
  1. PARNATE [Suspect]
     Indication: DEPRESSION
     Dosage: 20MG PER DAY
     Route: 048
     Dates: start: 19850101
  2. COUMADIN [Suspect]
     Indication: ATRIAL FIBRILLATION
     Dates: start: 20030901
  3. UNKNOWN MEDICATION [Concomitant]
     Route: 065
  4. DIGOXIN [Concomitant]
  5. NEXIUM [Concomitant]
  6. MOBIC [Concomitant]
  7. NEURONTIN [Concomitant]
  8. ATIVAN [Concomitant]
  9. PREMARIN [Concomitant]

REACTIONS (2)
  - ALOPECIA [None]
  - HAIR TEXTURE ABNORMAL [None]
